FAERS Safety Report 14590693 (Version 1)
Quarter: 2018Q1

REPORT INFORMATION
  Report Type: Spontaneous
  Country: FR (occurrence: FR)
  Receive Date: 20180302
  Receipt Date: 20180302
  Transmission Date: 20180509
  Serious: Yes (Hospitalization)
  Sender: FDA-Public Use
  Company Number: FR-ABBVIE-18P-056-2272897-00

PATIENT
  Age: 9 Year
  Sex: Male

DRUGS (1)
  1. ENANTONE LP [Suspect]
     Active Substance: LEUPROLIDE ACETATE
     Indication: PRECOCIOUS PUBERTY
     Dosage: UNK
     Route: 050
     Dates: start: 20170825

REACTIONS (3)
  - Subcutaneous abscess [Unknown]
  - Cutaneous symptom [Unknown]
  - Pyrexia [Unknown]

NARRATIVE: CASE EVENT DATE: 201709
